FAERS Safety Report 15531266 (Version 2)
Quarter: 2018Q4

REPORT INFORMATION
  Report Type: Report from Study
  Country: US (occurrence: US)
  Receive Date: 20181019
  Receipt Date: 20181122
  Transmission Date: 20190205
  Serious: Yes (Other)
  Sender: FDA-Public Use
  Company Number: US-BIOGEN-2018BI00641926

PATIENT
  Sex: Male

DRUGS (1)
  1. TECFIDERA [Suspect]
     Active Substance: DIMETHYL FUMARATE
     Indication: MULTIPLE SCLEROSIS
     Route: 065
     Dates: start: 20180205

REACTIONS (5)
  - Fall [Recovered/Resolved]
  - Malaise [Unknown]
  - Osteomyelitis acute [Unknown]
  - Temperature intolerance [Unknown]
  - Tendon injury [Unknown]
